FAERS Safety Report 24332864 (Version 1)
Quarter: 2024Q3

REPORT INFORMATION
  Report Type: Spontaneous
  Country: US (occurrence: None)
  Receive Date: 20240917
  Receipt Date: 20240917
  Transmission Date: 20241017
  Serious: Yes (Hospitalization)
  Sender: Public
  Company Number: None

PATIENT
  Age: 10 Year
  Sex: Female
  Weight: 37.8 kg

DRUGS (11)
  1. DOJOLVI [Suspect]
     Active Substance: TRIHEPTANOIN
     Indication: Pyruvate carboxylase deficiency
     Dosage: FREQUENCY : DAILY; ?DOSE: 1.9G/KG/DAY?OTHER ROUTE : GASTROSTOMY TUBE;?
     Route: 050
     Dates: start: 20160306
  2. CYTALUX [Concomitant]
     Active Substance: PAFOLACIANINE SODIUM
  3. L Aspartlc acid [Concomitant]
  4. LEVOCARNITINE [Concomitant]
     Active Substance: LEVOCARNITINE
  5. COENZYME Q10 [Concomitant]
     Active Substance: DIETARY SUPPLEMENT\UBIDECARENONE
  6. THIAMINE [Concomitant]
     Active Substance: THIAMINE
  7. LEUCOVORIN [Concomitant]
     Active Substance: LEUCOVORIN\LEUCOVORIN CALCIUM
  8. LACOSAMIDE [Concomitant]
     Active Substance: LACOSAMIDE
  9. PHENOBARBITAL [Concomitant]
  10. CENOBAMATE (XCOPRI) [Concomitant]
  11. Epldlolex [Concomitant]

REACTIONS (6)
  - Lactic acidosis [None]
  - Seizure [None]
  - Pneumonia [None]
  - Illness [None]
  - Chest X-ray abnormal [None]
  - Dyspnoea [None]

NARRATIVE: CASE EVENT DATE: 20240915
